FAERS Safety Report 4755974-6 (Version None)
Quarter: 2005Q3

REPORT INFORMATION
  Report Type: 
  Country: None (occurrence: None)
  Receive Date: 20050825
  Receipt Date: 20050620
  Transmission Date: 20060218
  Serious: Yes (Hospitalization)
  Sender: FDA-Public Use
  Company Number: WAES 0506USA03018

PATIENT
  Age: 75 Year
  Sex: Female

DRUGS (8)
  1. VYTORIN [Suspect]
     Indication: BLOOD CHOLESTEROL INCREASED
     Dosage: 10-40 MG/DAILY/PO
     Route: 048
     Dates: start: 20050418, end: 20050426
  2. ALEVE [Concomitant]
  3. LEVOTHROID [Concomitant]
  4. SOMA [Concomitant]
  5. TOPROL-XL [Concomitant]
  6. TYLENOL [Concomitant]
  7. VICODIN [Concomitant]
  8. IBUPROFEN [Concomitant]

REACTIONS (2)
  - MUSCLE SPASMS [None]
  - VERTIGO [None]
